FAERS Safety Report 16072891 (Version 1)
Quarter: 2019Q1

REPORT INFORMATION
  Report Type: Spontaneous
  Country: US (occurrence: US)
  Receive Date: 20190314
  Receipt Date: 20190314
  Transmission Date: 20190418
  Serious: Yes (Other)
  Sender: FDA-Public Use
  Company Number: US-PFIZER INC-2015332914

PATIENT
  Age: 79 Year
  Sex: Female
  Weight: 43.84 kg

DRUGS (1)
  1. RELPAX [Suspect]
     Active Substance: ELETRIPTAN HYDROBROMIDE
     Indication: CLUSTER HEADACHE
     Dosage: 40 MG, 1X/DAY (TAKE ONSET OF HA REPEAT 1X IF NEEDED)
     Route: 048

REACTIONS (2)
  - Dyspnoea [Unknown]
  - Drug effective for unapproved indication [Unknown]
